FAERS Safety Report 25236582 (Version 1)
Quarter: 2025Q2

REPORT INFORMATION
  Report Type: Spontaneous
  Country: IL (occurrence: IL)
  Receive Date: 20250424
  Receipt Date: 20250424
  Transmission Date: 20250716
  Serious: Yes (Other)
  Sender: JOURNEY MEDICAL CORPORATION
  Company Number: IL-JOURNEY MEDICAL CORPORATION-2025JNY00066

PATIENT
  Age: 54 Year
  Sex: Female

DRUGS (2)
  1. MINOCYCLINE [Suspect]
     Active Substance: MINOCYCLINE HYDROCHLORIDE
     Indication: Rosacea
  2. UNSPECIFIED INGREDIENT [Concomitant]
     Active Substance: UNSPECIFIED INGREDIENT
     Indication: Dyslipidaemia

REACTIONS (1)
  - Polyarteritis nodosa [Recovered/Resolved]

NARRATIVE: CASE EVENT DATE: 20230301
